FAERS Safety Report 5131086-7 (Version None)
Quarter: 2006Q3

REPORT INFORMATION
  Report Type: 
  Country: None (occurrence: None)
  Receive Date: 20060825
  Receipt Date: 20051004
  Transmission Date: 20061208
  Serious: Yes (Other)
  Sender: FDA-Public Use
  Company Number: 2005138328

PATIENT
  Age: 40 Year
  Sex: Female
  Weight: 56.6996 kg

DRUGS (1)
  1. VFEND [Suspect]
     Indication: SINUSITIS FUNGAL
     Dosage: 400 MG (200 MG, 2 IN 1 D) , ORAL
     Route: 048
     Dates: start: 20050901

REACTIONS (4)
  - ALTERED VISUAL DEPTH PERCEPTION [None]
  - AMNESIA [None]
  - CONFUSIONAL STATE [None]
  - PSEUDOMONAS INFECTION [None]
